FAERS Safety Report 18554889 (Version 1)
Quarter: 2020Q4

REPORT INFORMATION
  Report Type: Spontaneous
  Country: US (occurrence: US)
  Receive Date: 20201127
  Receipt Date: 20201127
  Transmission Date: 20210114
  Serious: Yes (Death, Hospitalization, Other)
  Sender: FDA-Public Use
  Company Number: US-JNJFOC-20201135553

PATIENT

DRUGS (10)
  1. EPOPROSTENOL SODIUM. [Suspect]
     Active Substance: EPOPROSTENOL SODIUM
     Indication: PULMONARY ARTERIAL HYPERTENSION
     Route: 042
  2. METHOTREXATE. [Concomitant]
     Active Substance: METHOTREXATE
  3. OXYGEN. [Concomitant]
     Active Substance: OXYGEN
  4. AMBRISENTAN [Concomitant]
     Active Substance: AMBRISENTAN
  5. PREDNISONE. [Concomitant]
     Active Substance: PREDNISONE
  6. SILDENAFIL. [Concomitant]
     Active Substance: SILDENAFIL
  7. PLAQUENIL [HYDROXYCHLOROQUINE PHOSPHATE] [Concomitant]
     Active Substance: HYDROXYCHLOROQUINE DIPHOSPHATE
  8. AZATHIOPRINE. [Concomitant]
     Active Substance: AZATHIOPRINE
  9. TADALAFIL. [Concomitant]
     Active Substance: TADALAFIL
  10. INFLIXIMAB [Concomitant]
     Active Substance: INFLIXIMAB

REACTIONS (7)
  - Drug effective for unapproved indication [Unknown]
  - Ventilation perfusion mismatch [Recovered/Resolved]
  - Off label use [Unknown]
  - Death [Fatal]
  - Adverse drug reaction [Unknown]
  - Lung transplant [Unknown]
  - Product use in unapproved indication [Unknown]
